APPROVED DRUG PRODUCT: CLEOCIN
Active Ingredient: CLINDAMYCIN PHOSPHATE
Strength: EQ 1% BASE
Dosage Form/Route: SWAB;TOPICAL
Application: N050537 | Product #002
Applicant: PFIZER INC
Approved: Feb 22, 1994 | RLD: Yes | RS: No | Type: DISCN